FAERS Safety Report 4266852-3 (Version None)
Quarter: 2004Q1

REPORT INFORMATION
  Report Type: 
  Country: None (occurrence: None)
  Receive Date: 20040108
  Receipt Date: 20040108
  Transmission Date: 20041129
  Serious: Yes (Other)
  Sender: FDA-Public Use
  Company Number: None

PATIENT
  Sex: Male
  Weight: 60 kg

DRUGS (2)
  1. DILTIAZEM [Suspect]
     Indication: ATRIAL FIBRILLATION
     Dosage: 5MG/HR INTRAVENOUS
     Route: 042
  2. NORMAL SALINE 100 MG ADD-VANTAGE BAG ABBOTT [Suspect]

REACTIONS (2)
  - PHARMACEUTICAL PRODUCT COMPLAINT [None]
  - SKIN DISCOLOURATION [None]
